FAERS Safety Report 20915706 (Version 1)
Quarter: 2022Q2

REPORT INFORMATION
  Report Type: Spontaneous
  Country: US (occurrence: US)
  Receive Date: 20220604
  Receipt Date: 20220604
  Transmission Date: 20220721
  Serious: Yes (Hospitalization)
  Sender: FDA-Public Use
  Company Number: US-SA-SAC20220531000138

PATIENT
  Age: 59 Year
  Sex: Male

DRUGS (19)
  1. FABRAZYME [Suspect]
     Active Substance: AGALSIDASE BETA
     Indication: Renal transplant
     Dosage: 70 MG, QOW
     Route: 042
     Dates: start: 20190730
  2. FABRAZYME [Suspect]
     Active Substance: AGALSIDASE BETA
     Indication: Fabry^s disease
  3. DIPHENHYDRAMINE HYDROCHLORIDE [Concomitant]
     Active Substance: DIPHENHYDRAMINE HYDROCHLORIDE
  4. SODIUM CHLORIDE [Concomitant]
     Active Substance: SODIUM CHLORIDE
  5. STERILE WATER [Concomitant]
     Active Substance: WATER
  6. EPINEPHRINE [Concomitant]
     Active Substance: EPINEPHRINE
  7. VITAMIN A [Concomitant]
     Active Substance: VITAMIN A
  8. ENBREL [Concomitant]
     Active Substance: ETANERCEPT
  9. XANAX [Concomitant]
     Active Substance: ALPRAZOLAM
  10. CLOPIDOGREL [Concomitant]
     Active Substance: CLOPIDOGREL BISULFATE
  11. TACROLIMUS [Concomitant]
     Active Substance: TACROLIMUS
  12. MELATONIN [Concomitant]
     Active Substance: MELATONIN
     Dosage: UNK
  13. VITAMIN D3 [Concomitant]
     Active Substance: CHOLECALCIFEROL
  14. ATORVASTATIN CALCIUM [Concomitant]
     Active Substance: ATORVASTATIN CALCIUM
  15. MYCOPHENOLATE MOFETIL [Concomitant]
     Active Substance: MYCOPHENOLATE MOFETIL
  16. SERTRALINE HYDROCHLORIDE [Concomitant]
     Active Substance: SERTRALINE HYDROCHLORIDE
  17. LEVOTHYROXINE [Concomitant]
     Active Substance: LEVOTHYROXINE
  18. VITAMINS NOS [Concomitant]
     Active Substance: VITAMINS
  19. SODIUM CHLORIDE [Concomitant]
     Active Substance: SODIUM CHLORIDE
     Dosage: UNK

REACTIONS (4)
  - Norovirus infection [Not Recovered/Not Resolved]
  - Dehydration [Not Recovered/Not Resolved]
  - Cough [Not Recovered/Not Resolved]
  - Product use in unapproved indication [Unknown]

NARRATIVE: CASE EVENT DATE: 20190730
